FAERS Safety Report 7203153-5 (Version None)
Quarter: 2010Q4

REPORT INFORMATION
  Report Type: 
  Country: None (occurrence: None)
  Receive Date: 20101229
  Receipt Date: 20101216
  Transmission Date: 20110411
  Serious: Yes (Hospitalization)
  Sender: FDA-Public Use
  Company Number: US-MYLANLABS-2010S1023449

PATIENT
  Age: 85 Year
  Sex: Male

DRUGS (14)
  1. DILTIAZEM [Interacting]
     Indication: SUPRAVENTRICULAR TACHYCARDIA
     Route: 065
  2. FENTANYL [Interacting]
     Indication: PAIN
     Route: 062
  3. FENTANYL-100 [Suspect]
     Route: 042
  4. FENTANYL-100 [Suspect]
     Route: 042
  5. OXYCODONE [Concomitant]
     Indication: PAIN
     Dosage: 15-30 MG EVERY 4H AS NEEDED
     Route: 065
  6. RANITIDINE [Concomitant]
     Dosage: AT BEDTIME
     Route: 065
  7. PREVACID [Concomitant]
     Route: 065
  8. SENNA [Concomitant]
     Dosage: 2 TABLETS 3 TIMES/DAY
     Route: 048
  9. COLACE [Concomitant]
     Route: 065
  10. FLOMAX /01280302/ [Concomitant]
     Route: 065
  11. PIPERACILLIN W/TAZOBACTAM          /01606301/ [Concomitant]
     Route: 065
  12. VANCOMYCIN [Concomitant]
     Route: 065
  13. HALOPERIDOL [Concomitant]
     Indication: DELIRIUM
     Route: 065
  14. LORAZEPAM [Concomitant]
     Indication: DELIRIUM
     Route: 065

REACTIONS (2)
  - DELIRIUM [None]
  - DRUG INTERACTION [None]
